FAERS Safety Report 4650836-7 (Version None)
Quarter: 2005Q2

REPORT INFORMATION
  Report Type: 
  Country: None (occurrence: None)
  Receive Date: 20050503
  Receipt Date: 20050427
  Transmission Date: 20051028
  Serious: Yes (Other)
  Sender: FDA-Public Use
  Company Number: PHEH2005US04772

PATIENT
  Sex: Female

DRUGS (4)
  1. PAMIDRONATE DISODIUM [Suspect]
     Dosage: UNK, QMO
     Route: 042
  2. OXYCONTIN [Concomitant]
     Dosage: 90 MG, TID
  3. PERCOCET [Concomitant]
  4. AREDIA [Suspect]
     Dosage: UNK, QMO
     Route: 042

REACTIONS (2)
  - ASEPTIC NECROSIS BONE [None]
  - PAIN IN JAW [None]
